FAERS Safety Report 4587422-3 (Version None)
Quarter: 2005Q1

REPORT INFORMATION
  Report Type: 
  Country: None (occurrence: None)
  Receive Date: 20050215
  Receipt Date: 20050207
  Transmission Date: 20050727
  Serious: Yes (Hospitalization, Other)
  Sender: FDA-Public Use
  Company Number: 2005026652

PATIENT
  Age: 62 Year
  Sex: Male
  Weight: 107 kg

DRUGS (8)
  1. FELDENE [Suspect]
     Indication: BACK PAIN
     Dosage: 20 MG (20 MG, 1 IN 1 D), INTRAMUSCULAR
     Route: 030
     Dates: start: 20041110, end: 20041114
  2. PROPOFAN [Suspect]
     Indication: BACK PAIN
     Dosage: 4 DOSE FORMS (DAILY), ORAL
     Route: 048
     Dates: start: 20041110, end: 20041114
  3. APOREX                (DEXTROPROPOXYPHENE HYDROCHLORIDE, PARACETAMOL) [Concomitant]
  4. FUROSEMIDE [Concomitant]
  5. LERCANIDIPINE        (LECANIDIPINE) [Concomitant]
  6. LISINOPRIL [Concomitant]
  7. INSULIN ASPART             (INSULIN ASPART) [Concomitant]
  8. INSULIN [Concomitant]

REACTIONS (5)
  - CONFUSIONAL STATE [None]
  - DEHYDRATION [None]
  - DIABETES MELLITUS INADEQUATE CONTROL [None]
  - HYPERTHYROIDISM [None]
  - RENAL FAILURE [None]
